FAERS Safety Report 4462236-3 (Version None)
Quarter: 2004Q3

REPORT INFORMATION
  Report Type: 
  Country: None (occurrence: None)
  Receive Date: 20040924
  Receipt Date: 20040915
  Transmission Date: 20050211
  Serious: Yes (Disabling, Other)
  Sender: FDA-Public Use
  Company Number: 2004234041US

PATIENT
  Age: 53 Year
  Sex: Female
  Weight: 52.6 kg

DRUGS (6)
  1. BEXTRA [Suspect]
     Indication: BACK PAIN
     Dosage: SEE IMAGE
     Dates: start: 20040730, end: 20040806
  2. BEXTRA [Suspect]
     Indication: BACK PAIN
     Dosage: SEE IMAGE
     Dates: start: 20040807, end: 20040916
  3. ZYRTEC [Concomitant]
  4. VITAMINS NOS (VITAMINS NOS) [Concomitant]
  5. FEMHRT [Concomitant]
  6. DECONGESTANT OTC [Concomitant]

REACTIONS (7)
  - BLINDNESS TRANSIENT [None]
  - CEREBROVASCULAR ACCIDENT [None]
  - MEDICATION ERROR [None]
  - ORAL MUCOSAL BLISTERING [None]
  - VIRAL INFECTION [None]
  - VISION BLURRED [None]
  - VISUAL DISTURBANCE [None]
